FAERS Safety Report 18105412 (Version 1)
Quarter: 2020Q3

REPORT INFORMATION
  Report Type: Spontaneous
  Country: PT (occurrence: PT)
  Receive Date: 20200804
  Receipt Date: 20200804
  Transmission Date: 20201103
  Serious: Yes (Hospitalization, Other)
  Sender: FDA-Public Use
  Company Number: PT-SUN PHARMACEUTICAL INDUSTRIES LTD-2020RR-256279

PATIENT
  Age: 15 Year
  Sex: Male

DRUGS (9)
  1. MIDAZOLAM. [Suspect]
     Active Substance: MIDAZOLAM
     Indication: TOURETTE^S DISORDER
     Dosage: ()
     Route: 040
  2. LORAZEPAM. [Suspect]
     Active Substance: LORAZEPAM
     Indication: TOURETTE^S DISORDER
     Dosage: 2 MILLIGRAM, TID
     Route: 065
  3. SERTRALINE [Suspect]
     Active Substance: SERTRALINE HYDROCHLORIDE
     Indication: PRODUCT USED FOR UNKNOWN INDICATION
     Dosage: 50 MILLIGRAM, DAILY
     Route: 065
  4. TETRABENAZINE. [Suspect]
     Active Substance: TETRABENAZINE
     Dosage: 25 MILLIGRAM, DAILY
     Route: 065
  5. TIAPRIDE [Suspect]
     Active Substance: TIAPRIDE
     Indication: TOURETTE^S DISORDER
     Dosage: 50 MILLIGRAM, TID
     Route: 065
  6. TETRABENAZINE. [Suspect]
     Active Substance: TETRABENAZINE
     Indication: TOURETTE^S DISORDER
     Dosage: 37.5 MILLIGRAM, BID
     Route: 065
  7. CLONIDINE. [Suspect]
     Active Substance: CLONIDINE
     Indication: TOURETTE^S DISORDER
     Dosage: 112.5 MICROGRAM, TID
     Route: 065
  8. DIAZEPAM. [Suspect]
     Active Substance: DIAZEPAM
     Indication: TOURETTE^S DISORDER
     Dosage: 5 MILLIGRAM, BID
     Route: 065
  9. ARIPIPRAZOLE. [Suspect]
     Active Substance: ARIPIPRAZOLE
     Indication: TOURETTE^S DISORDER
     Dosage: 1 MILLIGRAM, DAILY
     Route: 065

REACTIONS (3)
  - Parkinsonism [Recovered/Resolved]
  - Catatonia [Recovering/Resolving]
  - Neuroleptic malignant syndrome [Unknown]
